FAERS Safety Report 8796733 (Version 2)
Quarter: 2012Q4

REPORT INFORMATION
  Report Type: 
  Country: US (occurrence: US)
  Receive Date: 20120917
  Receipt Date: 20120921
  Transmission Date: 20130627
  Serious: Yes (Hospitalization, Other)
  Sender: FDA-Public Use
  Company Number: US-ASTRAZENECA-2012SE71414

PATIENT
  Age: 71 Year
  Sex: Male

DRUGS (1)
  1. BRILINTA [Suspect]
     Dosage: UNKNOWN DOSE TWO TIMES A DAY
     Route: 048

REACTIONS (3)
  - Blood pressure decreased [Recovering/Resolving]
  - Heart rate increased [Unknown]
  - Fall [Unknown]
